FAERS Safety Report 23222412 (Version 2)
Quarter: 2023Q4

REPORT INFORMATION
  Report Type: Report from Study
  Country: US (occurrence: US)
  Receive Date: 20231123
  Receipt Date: 20231226
  Transmission Date: 20240109
  Serious: Yes (Hospitalization, Other)
  Sender: FDA-Public Use
  Company Number: US-002147023-NVSC2023US247411

PATIENT
  Age: 71 Year
  Sex: Male

DRUGS (1)
  1. ENTRESTO [Suspect]
     Active Substance: SACUBITRIL\VALSARTAN
     Indication: Product used for unknown indication
     Dosage: UNK
     Route: 065
     Dates: start: 202309

REACTIONS (14)
  - Myocardial infarction [Unknown]
  - Angina pectoris [Recovered/Resolved]
  - Coronary artery occlusion [Unknown]
  - Pericardial effusion [Unknown]
  - Electrocardiogram abnormal [Unknown]
  - Hypotension [Unknown]
  - Brain fog [Unknown]
  - Weight fluctuation [Unknown]
  - Cough [Unknown]
  - Asthenia [Unknown]
  - Chest discomfort [Unknown]
  - Pollakiuria [Unknown]
  - Thirst [Unknown]
  - Abdominal distension [Unknown]

NARRATIVE: CASE EVENT DATE: 20230901
